FAERS Safety Report 7354511-X (Version None)
Quarter: 2011Q1

REPORT INFORMATION
  Report Type: 
  Country: None (occurrence: None)
  Receive Date: 20110316
  Receipt Date: 20100810
  Transmission Date: 20110831
  Serious: Yes (Hospitalization, Other)
  Sender: FDA-Public Use
  Company Number: US-BAYER-200939461NA

PATIENT
  Sex: Female
  Weight: 148 kg

DRUGS (5)
  1. FENOFIBRATE [Concomitant]
     Dosage: UNK
  2. YASMIN [Suspect]
     Dosage: UNK
     Dates: start: 20090316
  3. METFORMIN HCL [Concomitant]
  4. OCELLA [Suspect]
     Dosage: UNK
     Dates: start: 20090316
  5. YAZ [Suspect]
     Indication: MENSTRUATION IRREGULAR
     Dosage: UNK
     Dates: start: 20080101

REACTIONS (8)
  - CHOLESTEROSIS [None]
  - CHOLELITHIASIS [None]
  - BACK PAIN [None]
  - ABDOMINAL PAIN [None]
  - CHOLECYSTITIS CHRONIC [None]
  - ABDOMINAL PAIN UPPER [None]
  - NAUSEA [None]
  - VOMITING [None]
